APPROVED DRUG PRODUCT: TRYMEX
Active Ingredient: TRIAMCINOLONE ACETONIDE
Strength: 0.1%
Dosage Form/Route: CREAM;TOPICAL
Application: A088197 | Product #001
Applicant: SAVAGE LABORATORIES INC DIV ALTANA INC
Approved: Mar 25, 1983 | RLD: No | RS: No | Type: DISCN